FAERS Safety Report 7353807-5 (Version None)
Quarter: 2011Q1

REPORT INFORMATION
  Report Type: 
  Country: None (occurrence: None)
  Receive Date: 20110315
  Receipt Date: 20101104
  Transmission Date: 20110831
  Serious: No
  Sender: FDA-Public Use
  Company Number: US-BAYER-201023479BCC

PATIENT
  Sex: Female
  Weight: 72.562 kg

DRUGS (1)
  1. ALEVE [Suspect]
     Indication: TOOTHACHE
     Dosage: COUNT SIZE 24S
     Route: 048
     Dates: start: 20101103

REACTIONS (1)
  - TOOTHACHE [None]
